FAERS Safety Report 10051784 (Version 1)
Quarter: 2014Q2

REPORT INFORMATION
  Report Type: Spontaneous
  Country: FR (occurrence: FR)
  Receive Date: 20140402
  Receipt Date: 20140402
  Transmission Date: 20141212
  Serious: Yes (Hospitalization)
  Sender: FDA-Public Use
  Company Number: FR-ROCHE-1371576

PATIENT
  Age: 65 Year
  Sex: Male

DRUGS (6)
  1. AVASTIN [Suspect]
     Indication: GLIOBLASTOMA
     Dosage: 25 MG/ML
     Route: 041
     Dates: start: 201310, end: 20140224
  2. MEDROL [Concomitant]
     Route: 065
     Dates: start: 201310
  3. KEPPRA [Concomitant]
     Route: 065
  4. TEMODAL [Concomitant]
     Indication: GLIOBLASTOMA
     Route: 065
     Dates: start: 201310, end: 20140110
  5. SECTRAL [Concomitant]
     Indication: HYPERTENSION
     Route: 065
  6. MICARDIS PLUS [Concomitant]
     Indication: HYPERTENSION
     Route: 065

REACTIONS (1)
  - Pancreatitis acute [Recovered/Resolved]
